FAERS Safety Report 5563521-4 (Version None)
Quarter: 2007Q4

REPORT INFORMATION
  Report Type: 
  Country: None (occurrence: None)
  Receive Date: 20071217
  Receipt Date: 20070611
  Transmission Date: 20080405
  Serious: No
  Sender: FDA-Public Use
  Company Number: US-ASTRAZENECA-2007UW13975

PATIENT
  Age: 84 Year
  Sex: Female
  Weight: 65.8 kg

DRUGS (6)
  1. CRESTOR [Suspect]
     Route: 048
  2. LASIX [Concomitant]
  3. TENORMIN [Concomitant]
     Route: 048
  4. ACCUPRIL [Concomitant]
  5. ALDACTONE [Concomitant]
  6. VITAMIN E [Concomitant]

REACTIONS (2)
  - FEELING HOT [None]
  - HYPERHIDROSIS [None]
